FAERS Safety Report 6292525-1 (Version None)
Quarter: 2009Q3

REPORT INFORMATION
  Report Type: 
  Country: None (occurrence: None)
  Receive Date: 20090731
  Receipt Date: 20090727
  Transmission Date: 20100115
  Serious: Yes (Hospitalization)
  Sender: FDA-Public Use
  Company Number: JP-BAYER-200912411BYL

PATIENT
  Age: 79 Year
  Sex: Male

DRUGS (3)
  1. NEXAVAR [Suspect]
     Indication: HEPATIC NEOPLASM MALIGNANT
     Dosage: TOTAL DAILY DOSE: 800 MG  UNIT DOSE: 200 MG
     Route: 048
     Dates: start: 20090630
  2. DEPAS [Suspect]
     Indication: DRUG USE FOR UNKNOWN INDICATION
     Dosage: TOTAL 30 TABLETS (MIXTURE OF DEPAS AND GOODMIN)
     Route: 048
  3. GOODMIN [Suspect]
     Indication: DRUG USE FOR UNKNOWN INDICATION
     Dosage: TOTAL 30 TABLETS (MIXTURE OF DEPAS AND GOODMIN)
     Route: 048

REACTIONS (3)
  - HEPATIC ENCEPHALOPATHY [None]
  - LIVER DISORDER [None]
  - URTICARIA [None]
